FAERS Safety Report 16278855 (Version 2)
Quarter: 2019Q2

REPORT INFORMATION
  Report Type: Spontaneous
  Country: CA (occurrence: CA)
  Receive Date: 20190506
  Receipt Date: 20190514
  Transmission Date: 20190711
  Serious: Yes (Hospitalization, Other)
  Sender: FDA-Public Use
  Company Number: CA-PFIZER INC-2019190616

PATIENT
  Age: 82 Year
  Sex: Male
  Weight: 74 kg

DRUGS (6)
  1. AMIODARONE HCL [Suspect]
     Active Substance: AMIODARONE HYDROCHLORIDE
     Indication: ATRIAL FIBRILLATION
     Dosage: UNK
     Dates: start: 2017
  2. CLOPIDOGREL BISULFATE. [Suspect]
     Active Substance: CLOPIDOGREL BISULFATE
     Dosage: 75 MG, DAILY
     Dates: start: 201705
  3. ASA [Suspect]
     Active Substance: ASPIRIN
     Dosage: 325 MG, DAILY
     Route: 065
     Dates: start: 201705, end: 201705
  4. RIVAROXABAN [Suspect]
     Active Substance: RIVAROXABAN
     Dosage: 10 MG, DAILY
     Dates: start: 2017
  5. HEPARIN SODIUM. [Suspect]
     Active Substance: HEPARIN SODIUM
     Dosage: UNK (INFUSION)
     Dates: start: 201705
  6. ASA [Suspect]
     Active Substance: ASPIRIN
     Dosage: 81 MG, DAILY
     Dates: start: 201705

REACTIONS (12)
  - Aphasia [Recovered/Resolved]
  - Cerebral artery embolism [Recovered/Resolved]
  - Acute myocardial infarction [Recovered/Resolved]
  - Confusional state [Recovered/Resolved]
  - Haematoma [Recovered/Resolved]
  - Renal injury [Recovered/Resolved]
  - Dysphagia [Recovered/Resolved]
  - Electrocardiogram ST segment depression [Recovered/Resolved]
  - Facial paralysis [Recovered/Resolved]
  - Transient ischaemic attack [Recovered/Resolved]
  - Hemiparesis [Recovered/Resolved]
  - Chest discomfort [Recovered/Resolved]

NARRATIVE: CASE EVENT DATE: 2017
